FAERS Safety Report 14620712 (Version 2)
Quarter: 2020Q3

REPORT INFORMATION
  Report Type: Spontaneous
  Country: US (occurrence: US)
  Receive Date: 20180309
  Receipt Date: 20200712
  Transmission Date: 20201102
  Serious: Yes (Hospitalization)
  Sender: FDA-Public Use
  Company Number: US-TEVA-2018-US-866953

PATIENT
  Age: 11 Year
  Sex: Male

DRUGS (4)
  1. QVAR [Suspect]
     Active Substance: BECLOMETHASONE DIPROPIONATE
     Indication: ASTHMA
     Dosage: 80 MCG ONE PUFF TWICE A DAY
     Route: 055
  2. ADVAIR HFA [Suspect]
     Active Substance: FLUTICASONE PROPIONATE\SALMETEROL XINAFOATE
     Indication: ASTHMA
     Dosage: 2 DOSAGE FORMS DAILY; TWO PUFFS TWICE A DAY
     Route: 055
  3. FLOVENT HFA [Suspect]
     Active Substance: FLUTICASONE PROPIONATE
     Indication: ASTHMA
     Dosage: 2 DOSAGE FORMS DAILY; TWO PUFFS TWICE A DAY
     Route: 055
  4. TIOTROPIUM BROMIDE [Concomitant]
     Active Substance: TIOTROPIUM BROMIDE
     Route: 055

REACTIONS (9)
  - Idiopathic intracranial hypertension [Unknown]
  - Stress [Unknown]
  - Withdrawal syndrome [Unknown]
  - Intracranial pressure increased [Unknown]
  - Secondary adrenocortical insufficiency [Unknown]
  - Product use issue [Unknown]
  - Overdose [Unknown]
  - Abdominal pain [Unknown]
  - Constipation [Unknown]
